FAERS Safety Report 7495028-1 (Version None)
Quarter: 2011Q2

REPORT INFORMATION
  Report Type: 
  Country: None (occurrence: None)
  Receive Date: 20110520
  Receipt Date: 20110510
  Transmission Date: 20111010
  Serious: Yes (Hospitalization, Other)
  Sender: FDA-Public Use
  Company Number: US-ELI_LILLY_AND_COMPANY-US201104003472

PATIENT
  Sex: Female
  Weight: 97.052 kg

DRUGS (4)
  1. HUMALOG [Suspect]
     Indication: TYPE 2 DIABETES MELLITUS
     Dosage: 12 U, OTHER
  2. HUMALOG [Suspect]
     Dosage: 12 U, OTHER
  3. HUMALOG [Suspect]
     Dosage: UNK, PRN
  4. LANTUS [Concomitant]
     Dosage: UNK, QD

REACTIONS (10)
  - LOSS OF CONSCIOUSNESS [None]
  - DRUG INEFFECTIVE [None]
  - DEHYDRATION [None]
  - BLOOD GLUCOSE INCREASED [None]
  - INCORRECT DOSE ADMINISTERED [None]
  - HEAD INJURY [None]
  - DIZZINESS [None]
  - INFECTION [None]
  - URINARY TRACT INFECTION [None]
  - HOSPITALISATION [None]
